FAERS Safety Report 5204943-0 (Version None)
Quarter: 2007Q1

REPORT INFORMATION
  Report Type: 
  Country: None (occurrence: None)
  Receive Date: 20070110
  Receipt Date: 20060911
  Transmission Date: 20070707
  Serious: No
  Sender: FDA-Public Use
  Company Number: US-BRISTOL-MYERS SQUIBB COMPANY-13504386

PATIENT
  Age: 29 Year
  Sex: Female
  Weight: 68 kg

DRUGS (4)
  1. ABILIFY [Suspect]
     Indication: BIPOLAR DISORDER
     Dosage: DOSE REDUCED TO 15MG QD WHEN SYMPTOMS WERE REPORTED THEN INCREASED 1 WEEK LATER TO 30MG QD.
     Route: 048
     Dates: start: 20060801
  2. LITHIUM CARBONATE [Concomitant]
     Dosage: 600MG EVERY AM 900MG EVERY PM
  3. HALDOL [Concomitant]
  4. ATIVAN [Concomitant]

REACTIONS (6)
  - DRUG INEFFECTIVE [None]
  - HEADACHE [None]
  - INSOMNIA [None]
  - NAUSEA [None]
  - STOMACH DISCOMFORT [None]
  - TREMOR [None]
